FAERS Safety Report 16638679 (Version 2)
Quarter: 2020Q1

REPORT INFORMATION
  Report Type: Spontaneous
  Country: US (occurrence: US)
  Receive Date: 20190726
  Receipt Date: 20200319
  Transmission Date: 20200409
  Serious: Yes (Disabling, Other)
  Sender: FDA-Public Use
  Company Number: US-MYLANLABS-2019M1070509

PATIENT
  Age: 45 Year
  Sex: Female

DRUGS (8)
  1. DILTIAZEM. [Concomitant]
     Active Substance: DILTIAZEM
     Indication: HYPERTENSION
     Dosage: 120 MILLIGRAM, QD
     Dates: start: 20060101, end: 20171111
  2. CODINE LINCTUS [Concomitant]
     Dosage: 40 MILLIGRAM
     Route: 048
  3. VALSARTAN. [Suspect]
     Active Substance: VALSARTAN
     Indication: HYPERTENSION
     Dosage: 80 MILLIGRAM
     Dates: start: 20140818, end: 20161212
  4. VALSARTAN. [Suspect]
     Active Substance: VALSARTAN
     Dosage: 80 MILLIGRAM
     Dates: start: 20171114, end: 20180515
  5. LIPITOR [Concomitant]
     Active Substance: ATORVASTATIN CALCIUM
     Indication: BLOOD CHOLESTEROL INCREASED
     Dosage: 10 MILLIGRAM, QD
     Dates: start: 20110627, end: 20180222
  6. HYDROCHLOROTHIAZIDE/VALSARTAN [Suspect]
     Active Substance: HYDROCHLOROTHIAZIDE\VALSARTAN
     Indication: HYPERTENSION
     Dosage: UNK (DOSE 160/12.5MG)
     Dates: start: 20130218, end: 20140818
  7. LORAZEPAM. [Concomitant]
     Active Substance: LORAZEPAM
     Indication: ANXIETY
     Dosage: 0.5 MILLIGRAM, QD
     Dates: start: 20100601, end: 20171212
  8. PREDNISONE. [Concomitant]
     Active Substance: PREDNISONE
     Indication: INFLAMMATION
     Dosage: UNK, BID
     Route: 048

REACTIONS (4)
  - Chest pain [Unknown]
  - Renal cancer [Unknown]
  - Recalled product administered [Unknown]
  - Renal cyst [Unknown]

NARRATIVE: CASE EVENT DATE: 20161019
